FAERS Safety Report 4939544-2 (Version None)
Quarter: 2006Q1

REPORT INFORMATION
  Report Type: 
  Country: None (occurrence: None)
  Receive Date: 20060310
  Receipt Date: 20050909
  Transmission Date: 20060701
  Serious: Yes (Other)
  Sender: FDA-Public Use
  Company Number: US-AMGEN-US150092

PATIENT
  Sex: Female
  Weight: 52.7 kg

DRUGS (6)
  1. ENBREL [Suspect]
     Indication: RHEUMATOID ARTHRITIS
     Dates: start: 19980101, end: 20050301
  2. METHOTREXATE [Concomitant]
     Dates: start: 19960101, end: 20050701
  3. PLAQUENIL [Concomitant]
     Dates: start: 19960101
  4. AZULFIDINE [Concomitant]
     Dates: start: 19960101
  5. VITAMINS NOS [Concomitant]
  6. FOLIC ACID [Concomitant]

REACTIONS (3)
  - B-CELL LYMPHOMA [None]
  - CONDITION AGGRAVATED [None]
  - RHEUMATOID ARTHRITIS [None]
